FAERS Safety Report 7009753-X (Version None)
Quarter: 2010Q3

REPORT INFORMATION
  Report Type: 
  Country: None (occurrence: None)
  Receive Date: 20100903
  Receipt Date: 20100811
  Transmission Date: 20110219
  Serious: No
  Sender: FDA-Public Use
  Company Number: 2010-00629

PATIENT
  Age: 75 Year
  Sex: Female
  Weight: 63.5036 kg

DRUGS (6)
  1. ZICAM EXTREME CONGESTION RELIEF [Suspect]
     Dosage: 4 DAYS WEEK, 4X WEEK
     Dates: start: 20090101, end: 20100701
  2. ZICAM INTENSE SINUS RELIEF [Suspect]
     Dosage: SPORADIC USE, SPORADIC
     Dates: start: 20090101, end: 20100701
  3. ZICAM COLD REMEDY ORAL MIST [Suspect]
     Dosage: SPORADIC USE, SPORADIC
     Dates: start: 20090101, end: 20100701
  4. ARIMIDEX [Concomitant]
  5. NEURONTIN [Concomitant]
  6. CARDIZEM [Concomitant]

REACTIONS (2)
  - AGEUSIA [None]
  - ANOSMIA [None]
